FAERS Safety Report 4313769-1 (Version None)
Quarter: 2004Q1

REPORT INFORMATION
  Report Type: 
  Country: None (occurrence: None)
  Receive Date: 20040305
  Receipt Date: 20040224
  Transmission Date: 20041129
  Serious: Yes (Hospitalization)
  Sender: FDA-Public Use
  Company Number: HQWYE286324FEB04

PATIENT
  Age: 77 Year
  Sex: Male

DRUGS (6)
  1. CORDARONE [Suspect]
     Indication: ARRHYTHMIA
     Dosage: SEE IMAGE, ORAL
     Route: 048
     Dates: start: 20040106, end: 20040101
  2. CORDARONE [Suspect]
     Indication: TACHYCARDIA
     Dosage: SEE IMAGE, ORAL
     Route: 048
     Dates: start: 20040106, end: 20040101
  3. CORDARONE [Suspect]
     Indication: ARRHYTHMIA
     Dosage: SEE IMAGE, ORAL
     Route: 048
     Dates: start: 20040101, end: 20040209
  4. CORDARONE [Suspect]
     Indication: TACHYCARDIA
     Dosage: SEE IMAGE, ORAL
     Route: 048
     Dates: start: 20040101, end: 20040209
  5. BISOPROLOL FUMARATE [Concomitant]
  6. PRAVASTATIN SODIUM [Concomitant]

REACTIONS (3)
  - ACUTE PULMONARY OEDEMA [None]
  - CYTOLYTIC HEPATITIS [None]
  - TACHYCARDIA [None]
